FAERS Safety Report 7895763-7 (Version None)
Quarter: 2011Q4

REPORT INFORMATION
  Report Type: 
  Country: None (occurrence: None)
  Receive Date: 20111104
  Receipt Date: 20111104
  Transmission Date: 20120403
  Serious: Yes (Hospitalization)
  Sender: FDA-Public Use
  Company Number: None

PATIENT
  Sex: Female
  Weight: 66.6 kg

DRUGS (2)
  1. DEXAMETHASONE [Suspect]
     Dosage: 160 MG
     Dates: end: 20110825
  2. MELPHALAN HYDROCHLORIDE [Suspect]
     Dosage: 64 MG
     Dates: end: 20110825

REACTIONS (10)
  - DEEP VEIN THROMBOSIS [None]
  - HYPOKALAEMIA [None]
  - DYSPNOEA [None]
  - DEHYDRATION [None]
  - VOMITING [None]
  - PLATELET COUNT DECREASED [None]
  - DIZZINESS [None]
  - OEDEMA PERIPHERAL [None]
  - NEUTROPENIC SEPSIS [None]
  - ASTHENIA [None]
